FAERS Safety Report 24618773 (Version 5)
Quarter: 2025Q2

REPORT INFORMATION
  Report Type: Spontaneous
  Country: GB (occurrence: GB)
  Receive Date: 20241114
  Receipt Date: 20250409
  Transmission Date: 20250717
  Serious: Yes (Life-Threatening, Hospitalization, Other)
  Sender: PFIZER
  Company Number: GB-PFIZER INC-PV202400146251

PATIENT
  Age: 68 Year
  Sex: Male
  Weight: 44 kg

DRUGS (3)
  1. ELRANATAMAB [Suspect]
     Active Substance: ELRANATAMAB
     Indication: Plasma cell myeloma
     Dosage: 76 MG, WEEKLY
     Route: 058
     Dates: start: 20240625
  2. ELRANATAMAB [Suspect]
     Active Substance: ELRANATAMAB
     Route: 058
     Dates: start: 20241122, end: 20241206
  3. DOXORUBICIN HYDROCHLORIDE [Concomitant]
     Active Substance: DOXORUBICIN HYDROCHLORIDE
     Indication: Kaposi sarcoma inflammatory cytokine syndrome
     Dosage: 20MG/M2= 30MG IV INFUSIONS EVERY 21 DAYS
     Route: 042
     Dates: start: 2024

REACTIONS (12)
  - Second primary malignancy [Not Recovered/Not Resolved]
  - Iatrogenic Kaposi sarcoma [Not Recovered/Not Resolved]
  - Escherichia sepsis [Recovered/Resolved]
  - Respiratory syncytial virus infection [Recovered/Resolved]
  - Deep vein thrombosis [Unknown]
  - Septic shock [Unknown]
  - Cardiac arrest [Recovered/Resolved]
  - Thalamic stroke [Unknown]
  - Hypovolaemia [Unknown]
  - Visual impairment [Unknown]
  - Diarrhoea [Unknown]
  - Off label use [Unknown]

NARRATIVE: CASE EVENT DATE: 20240101
